FAERS Safety Report 22399579 (Version 4)
Quarter: 2025Q2

REPORT INFORMATION
  Report Type: Report from Study
  Country: KR (occurrence: KR)
  Receive Date: 20230602
  Receipt Date: 20250620
  Transmission Date: 20250717
  Serious: Yes (Disabling, Other)
  Sender: MYLAN
  Company Number: KR-MYLANLABS-2023M1044787

PATIENT
  Sex: Male

DRUGS (4)
  1. LYRICA [Suspect]
     Active Substance: PREGABALIN
     Indication: Blister
     Dosage: 165 MILLIGRAM, QD (APPROXIMATELY 2020)
  2. LYRICA [Suspect]
     Active Substance: PREGABALIN
     Dosage: 165 MILLIGRAM, QD (APPROXIMATELY 2020)
     Route: 048
  3. LYRICA [Suspect]
     Active Substance: PREGABALIN
     Dosage: 165 MILLIGRAM, QD (APPROXIMATELY 2020)
     Route: 048
  4. LYRICA [Suspect]
     Active Substance: PREGABALIN
     Dosage: 165 MILLIGRAM, QD (APPROXIMATELY 2020)

REACTIONS (6)
  - Blindness unilateral [Not Recovered/Not Resolved]
  - Visual acuity reduced [Unknown]
  - Drug ineffective [Not Recovered/Not Resolved]
  - Abdominal discomfort [Unknown]
  - Glycosylated haemoglobin abnormal [Unknown]
  - Product dose omission issue [Recovered/Resolved]
